FAERS Safety Report 16595767 (Version 1)
Quarter: 2019Q3

REPORT INFORMATION
  Report Type: Spontaneous
  Country: FR (occurrence: FR)
  Receive Date: 20190719
  Receipt Date: 20190719
  Transmission Date: 20191004
  Serious: Yes (Other)
  Sender: FDA-Public Use
  Company Number: FR-SA-2019SA189024

PATIENT
  Age: 17 Year
  Sex: Female

DRUGS (2)
  1. NORDAZEPAM [Suspect]
     Active Substance: NORDAZEPAM
     Dosage: UNK
  2. ZOLPIDEM TARTRATE. [Suspect]
     Active Substance: ZOLPIDEM TARTRATE
     Dosage: UNK

REACTIONS (3)
  - Amnesia [Unknown]
  - Victim of chemical submission [Unknown]
  - Somnolence [Unknown]

NARRATIVE: CASE EVENT DATE: 20180703
